FAERS Safety Report 5322723-2 (Version None)
Quarter: 2007Q2

REPORT INFORMATION
  Report Type: 
  Country: None (occurrence: None)
  Receive Date: 20070511
  Receipt Date: 20070502
  Transmission Date: 20071010
  Serious: Yes (Hospitalization)
  Sender: FDA-Public Use
  Company Number: DE-PFIZER INC-2006110928

PATIENT
  Age: 42 Year
  Sex: Male
  Weight: 93 kg

DRUGS (7)
  1. INSPRA [Suspect]
     Indication: CARDIAC FAILURE
     Dosage: DAILY DOSE:25MG-FREQ:DAILY
     Route: 048
     Dates: start: 20060601, end: 20060901
  2. CARVEDILOL [Concomitant]
     Route: 048
  3. MARCUMAR [Concomitant]
     Route: 048
     Dates: start: 20040401
  4. NITROGLYCERIN [Concomitant]
  5. DIGITOXIN TAB [Concomitant]
     Route: 048
     Dates: start: 20040401
  6. RAMIPRIL [Concomitant]
     Route: 048
     Dates: start: 20040401
  7. TORSEMIDE [Concomitant]
     Route: 048

REACTIONS (3)
  - BLOOD GLUCOSE INCREASED [None]
  - HYPERHIDROSIS [None]
  - VISUAL DISTURBANCE [None]
